FAERS Safety Report 13681010 (Version 6)
Quarter: 2017Q3

REPORT INFORMATION
  Report Type: Report from Study
  Country: US (occurrence: US)
  Receive Date: 20170623
  Receipt Date: 20170830
  Transmission Date: 20171127
  Serious: Yes (Hospitalization, Other)
  Sender: FDA-Public Use
  Company Number: US-GILEAD-2017-0279745

PATIENT
  Age: 75 Year
  Sex: Female

DRUGS (4)
  1. ADCIRCA [Suspect]
     Active Substance: TADALAFIL
     Indication: PRODUCT USED FOR UNKNOWN INDICATION
     Dosage: UNK
     Route: 065
  2. AMBRISENTAN [Suspect]
     Active Substance: AMBRISENTAN
     Dosage: 5 MG, QD
     Route: 065
     Dates: start: 20170204
  3. AMBRISENTAN [Suspect]
     Active Substance: AMBRISENTAN
     Indication: PULMONARY HYPERTENSION
     Dosage: 5 MG, UNK
     Route: 065
     Dates: start: 20120305
  4. OXYGEN. [Concomitant]
     Active Substance: OXYGEN

REACTIONS (17)
  - Pulmonary fibrosis [Not Recovered/Not Resolved]
  - Thyroxine decreased [Unknown]
  - Lung disorder [Unknown]
  - Stress [Unknown]
  - Arthritis [Unknown]
  - Pulmonary artery dilatation [Unknown]
  - Road traffic accident [Unknown]
  - Unevaluable event [Unknown]
  - Occupational exposure to air contaminants [Unknown]
  - Oxygen saturation decreased [Unknown]
  - Unevaluable event [Not Recovered/Not Resolved]
  - Hypotension [Unknown]
  - Thyroid disorder [Not Recovered/Not Resolved]
  - Dyspnoea exertional [Not Recovered/Not Resolved]
  - Hypothyroidism [Not Recovered/Not Resolved]
  - Tremor [Unknown]
  - Total lung capacity abnormal [Unknown]

NARRATIVE: CASE EVENT DATE: 20170803
